FAERS Safety Report 8847925 (Version 1)
Quarter: 2012Q4

REPORT INFORMATION
  Report Type: 
  Country: US (occurrence: US)
  Receive Date: 20121018
  Receipt Date: 20121018
  Transmission Date: 20130627
  Serious: No
  Sender: FDA-Public Use
  Company Number: US-009507513-1210USA008439

PATIENT

DRUGS (1)
  1. GYNE LOTRIMIN 7 DAY CREAM [Suspect]
     Indication: FUNGAL INFECTION
     Dosage: UNK, Unknown
     Route: 067

REACTIONS (1)
  - Burning sensation [Unknown]
